FAERS Safety Report 9645523 (Version 2)
Quarter: 2013Q4

REPORT INFORMATION
  Report Type: Spontaneous
  Country: DE (occurrence: DE)
  Receive Date: 20131025
  Receipt Date: 20131025
  Transmission Date: 20140711
  Serious: Yes (Hospitalization, Other)
  Sender: FDA-Public Use
  Company Number: DE-ACTELION-A-CH2013-86388

PATIENT
  Age: 15 Year
  Sex: Male
  Weight: 43 kg

DRUGS (2)
  1. ZAVESCA [Suspect]
     Indication: NIEMANN-PICK DISEASE
     Dosage: 100 MG, TID
     Route: 048
     Dates: start: 20130419, end: 2013
  2. ZAVESCA [Suspect]
     Dosage: 100 MG, TID
     Route: 048
     Dates: start: 20091230, end: 200912

REACTIONS (8)
  - Diarrhoea haemorrhagic [Recovered/Resolved]
  - Niemann-Pick disease [Unknown]
  - Condition aggravated [Unknown]
  - Neurological decompensation [Unknown]
  - Diarrhoea [Unknown]
  - Thrombocytopenia [Unknown]
  - Mucous membrane disorder [Unknown]
  - Drug ineffective [Unknown]
